FAERS Safety Report 8351090-5 (Version None)
Quarter: 2012Q2

REPORT INFORMATION
  Report Type: 
  Country: None (occurrence: None)
  Receive Date: 20120510
  Receipt Date: 20120508
  Transmission Date: 20120825
  Serious: Yes (Other)
  Sender: FDA-Public Use
  Company Number: PHHY2012AU038675

PATIENT
  Age: 78 Year
  Sex: Male

DRUGS (7)
  1. LASIX [Concomitant]
  2. DIAMICRON [Concomitant]
  3. PANTOPRAZOLE [Concomitant]
  4. WARFARIN SODIUM [Concomitant]
  5. AMOXICILLIN AND CLAVULANATE POTASSIUM [Suspect]
     Route: 048
  6. ALDACTONE [Concomitant]
  7. LIPITOR [Concomitant]

REACTIONS (2)
  - GOUT [None]
  - ARTHRALGIA [None]
